FAERS Safety Report 7511968-9 (Version None)
Quarter: 2011Q2

REPORT INFORMATION
  Report Type: 
  Country: None (occurrence: None)
  Receive Date: 20110531
  Receipt Date: 20110518
  Transmission Date: 20111010
  Serious: Yes (Other)
  Sender: FDA-Public Use
  Company Number: PHHY2011BR43424

PATIENT
  Sex: Male
  Weight: 20 kg

DRUGS (1)
  1. TEGRETOL [Suspect]
     Indication: EPILEPSY
     Dosage: 4.5 ML, TWICE A DAY (AT 9 AM AND AT 9 PM)
     Route: 048
     Dates: start: 20090901

REACTIONS (9)
  - COELIAC DISEASE [None]
  - ABDOMINAL PAIN [None]
  - INCREASED UPPER AIRWAY SECRETION [None]
  - INFLUENZA [None]
  - COUGH [None]
  - AGITATION [None]
  - NERVOUSNESS [None]
  - GROWTH RETARDATION [None]
  - LIVER DISORDER [None]
